FAERS Safety Report 8115863-6 (Version None)
Quarter: 2011Q4

REPORT INFORMATION
  Report Type: 
  Country: None (occurrence: None)
  Receive Date: 20111227
  Receipt Date: 20111012
  Transmission Date: 20120403
  Serious: Yes (Other)
  Sender: FDA-Public Use
  Company Number: PHHY2011US36460

PATIENT
  Age: 48 Year
  Sex: Male

DRUGS (8)
  1. GILENYA [Suspect]
     Indication: MULTIPLE SCLEROSIS
     Dosage: 0.5 MG, QD, ORAL, 0.5 MG, QD
     Route: 048
     Dates: start: 20110225, end: 20110814
  2. GILENYA [Suspect]
     Indication: MULTIPLE SCLEROSIS
     Dosage: 0.5 MG, QD, ORAL, 0.5 MG, QD
     Route: 048
     Dates: end: 20110926
  3. CLOZAPINE [Concomitant]
  4. OXYBUTYNIN [Concomitant]
  5. CELEXA [Concomitant]
  6. GABAPENTIN [Concomitant]
  7. WELLBUTRIN /00700503/ (BUPROPION HYDROBROMIDE) [Concomitant]
  8. TIZANIDINE HCL [Concomitant]

REACTIONS (5)
  - FATIGUE [None]
  - WEIGHT DECREASED [None]
  - HYPOTENSION [None]
  - ASTHENIA [None]
  - CHILLS [None]
